FAERS Safety Report 20455183 (Version 6)
Quarter: 2023Q2

REPORT INFORMATION
  Report Type: Spontaneous
  Country: US (occurrence: US)
  Receive Date: 20220210
  Receipt Date: 20230410
  Transmission Date: 20230721
  Serious: Yes (Hospitalization, Other)
  Sender: FDA-Public Use
  Company Number: US-PFIZER INC-202200214919

PATIENT
  Age: 70 Year
  Sex: Female
  Weight: 70.31 kg

DRUGS (12)
  1. PRISTIQ EXTENDED-RELEASE [Suspect]
     Active Substance: DESVENLAFAXINE SUCCINATE
     Indication: Serum serotonin decreased
     Dosage: UNK
     Dates: start: 20160326
  2. PRISTIQ EXTENDED-RELEASE [Suspect]
     Active Substance: DESVENLAFAXINE SUCCINATE
     Indication: Narcolepsy
     Dosage: 100 MG, 1X/DAY
     Route: 048
     Dates: start: 20230215
  3. PRISTIQ EXTENDED-RELEASE [Suspect]
     Active Substance: DESVENLAFAXINE SUCCINATE
     Indication: Blood sodium decreased
  4. XYREM [Suspect]
     Active Substance: SODIUM OXYBATE
     Indication: Narcolepsy
     Dosage: UNK
  5. XYREM [Suspect]
     Active Substance: SODIUM OXYBATE
     Dosage: UNK
     Dates: start: 2021
  6. XYREM [Suspect]
     Active Substance: SODIUM OXYBATE
     Dosage: REDUCED
  7. LEVOMEFOLIC ACID [Concomitant]
     Active Substance: LEVOMEFOLIC ACID
     Indication: Serum serotonin decreased
     Dosage: 15 MG, 1X/DAY
  8. METOPROLOL [Concomitant]
     Active Substance: METOPROLOL
     Indication: Hypertension
  9. SUNOSI [Concomitant]
     Active Substance: SOLRIAMFETOL
  10. MODAFINIL [Concomitant]
     Active Substance: MODAFINIL
     Dosage: REDUCED
  11. GABAPENTIN [Concomitant]
     Active Substance: GABAPENTIN
     Dosage: UNK
  12. GABAPENTIN [Concomitant]
     Active Substance: GABAPENTIN
     Dosage: 200 MG, 2X/DAY

REACTIONS (37)
  - Limb injury [Unknown]
  - Fall [Unknown]
  - Hyponatraemia [Unknown]
  - Disease recurrence [Unknown]
  - Cholelithiasis [Unknown]
  - Chronic kidney disease [Unknown]
  - Pernicious anaemia [Unknown]
  - Metabolic acidosis [Recovered/Resolved]
  - Rotator cuff syndrome [Unknown]
  - Road traffic accident [Unknown]
  - Sternal fracture [Unknown]
  - Abdominal wall haematoma [Unknown]
  - Hepatic lesion [Unknown]
  - Foot fracture [Unknown]
  - Emphysema [Unknown]
  - Tendon rupture [Unknown]
  - Haemangioma of liver [Unknown]
  - Uterine leiomyoma [Unknown]
  - Dyspnoea [Unknown]
  - Arthropathy [Unknown]
  - Chest pain [Unknown]
  - COVID-19 [Unknown]
  - Frustration tolerance decreased [Unknown]
  - Oedema peripheral [Unknown]
  - Feeling abnormal [Unknown]
  - Tremor [Not Recovered/Not Resolved]
  - Back injury [Unknown]
  - Joint swelling [Unknown]
  - Dyspnoea exertional [Unknown]
  - Nausea [Recovering/Resolving]
  - Weight increased [Unknown]
  - Constipation [Unknown]
  - Somnolence [Unknown]
  - Diarrhoea [Unknown]
  - Weight decreased [Unknown]
  - Feeding disorder [Unknown]
  - Off label use [Unknown]

NARRATIVE: CASE EVENT DATE: 20160326
